FAERS Safety Report 24898105 (Version 2)
Quarter: 2025Q3

REPORT INFORMATION
  Report Type: Report from Study
  Country: KR (occurrence: KR)
  Receive Date: 20250129
  Receipt Date: 20250917
  Transmission Date: 20251020
  Serious: Yes (Hospitalization, Other)
  Sender: TAKEDA
  Company Number: KR-TAKEDA-2025TUS008085

PATIENT
  Age: 47 Year
  Sex: Male
  Weight: 98 kg

DRUGS (55)
  1. VEDOLIZUMAB [Suspect]
     Active Substance: VEDOLIZUMAB
     Indication: Crohn^s disease
  2. Duoclin [Concomitant]
     Dosage: 7.5 MILLIGRAM, BID
     Dates: start: 20240612, end: 20240617
  3. Trein [Concomitant]
     Dosage: 10 MILLIGRAM, QD
     Dates: start: 20240612, end: 20240617
  4. Trein [Concomitant]
     Dosage: 10 MILLIGRAM, 3/WEEK
     Dates: start: 20240710, end: 20240721
  5. Monterizine [Concomitant]
     Dosage: UNK UNK, QD
     Dates: start: 20240612, end: 20240617
  6. Monterizine [Concomitant]
     Dosage: UNK UNK, QD
     Dates: start: 20240710, end: 20240806
  7. SERTACONAZOLE NITRATE [Concomitant]
     Active Substance: SERTACONAZOLE NITRATE
     Dosage: 15 MILLIGRAM, BID
     Dates: start: 20240612, end: 20240617
  8. SERTACONAZOLE NITRATE [Concomitant]
     Active Substance: SERTACONAZOLE NITRATE
     Dates: start: 20240710, end: 20240710
  9. DESOWEN [Concomitant]
     Active Substance: DESONIDE
     Dates: start: 20240612, end: 20240623
  10. Corforge [Concomitant]
     Dosage: UNK UNK, QD
     Dates: start: 20230208, end: 20240617
  11. Corforge [Concomitant]
     Dosage: UNK UNK, QD
     Dates: start: 20240620, end: 20240623
  12. Corforge [Concomitant]
     Dosage: UNK UNK, QD
     Dates: start: 20240724, end: 20241127
  13. Feroba you sr [Concomitant]
     Dosage: UNK UNK, BID
     Dates: start: 20230208, end: 20240617
  14. Feroba you sr [Concomitant]
     Dosage: UNK UNK, BID
     Dates: start: 20240620, end: 20240623
  15. Dong a perdipine [Concomitant]
     Dosage: 300 MILLIGRAM, QD
     Dates: start: 20240618, end: 20240619
  16. AMINO ACIDS\DEXTROSE\ELECTROLYTES NOS\SOYBEAN OIL [Concomitant]
     Active Substance: AMINO ACIDS\DEXTROSE\ELECTROLYTES NOS\SOYBEAN OIL
     Indication: Nutritional supplementation
     Dates: start: 20240618, end: 20240619
  17. AMINO ACIDS\DEXTROSE\ELECTROLYTES NOS\SOYBEAN OIL [Concomitant]
     Active Substance: AMINO ACIDS\DEXTROSE\ELECTROLYTES NOS\SOYBEAN OIL
     Dates: start: 20240624, end: 20240627
  18. Peniramin [Concomitant]
     Indication: Prophylaxis
     Dates: start: 20240618, end: 20240618
  19. Harmonilan [Concomitant]
     Indication: Nutritional supplementation
     Dosage: 200 MILLILITER, TID
     Dates: start: 20240619, end: 20240623
  20. Dicamax [Concomitant]
     Indication: Prophylaxis
     Dosage: UNK UNK, QD
     Dates: start: 20240619, end: 20240623
  21. NEXIUM [Concomitant]
     Active Substance: ESOMEPRAZOLE MAGNESIUM
     Indication: Prophylaxis
     Dates: start: 20240619, end: 20240619
  22. Esomezole [Concomitant]
     Indication: Prophylaxis
     Dosage: 20 MILLIGRAM, QD
     Dates: start: 20240619, end: 20240623
  23. PLENVU [Concomitant]
     Active Substance: ASCORBIC ACID\POLYETHYLENE GLYCOL 3350\POTASSIUM CHLORIDE\SODIUM ASCORBATE\SODIUM CHLORIDE\SODIUM SU
     Indication: Bowel preparation
     Dates: start: 20240625, end: 20240625
  24. Bc fentanyl citrate [Concomitant]
     Indication: Sedative therapy
     Dosage: 0.05 MILLIGRAM, QD
     Dates: start: 20240626, end: 20240626
  25. MIDAZOLAM [Concomitant]
     Active Substance: MIDAZOLAM
     Indication: Sedative therapy
     Dates: start: 20240626, end: 20240626
  26. PROPOFOL [Concomitant]
     Active Substance: PROPOFOL
     Indication: Sedative therapy
     Dates: start: 20240626, end: 20240626
  27. Endocol [Concomitant]
     Indication: Bowel preparation
     Dates: start: 20240625, end: 20240625
  28. Bropium [Concomitant]
     Indication: Colonoscopy
     Dates: start: 20240626, end: 20240626
  29. Tamceton [Concomitant]
     Dates: start: 20240710, end: 20240710
  30. Bolgre [Concomitant]
     Dosage: UNK UNK, BID
     Dates: start: 20241113, end: 20241127
  31. Bolgre [Concomitant]
     Dosage: 20 MILLILITER, BID
     Dates: start: 20240724, end: 20240820
  32. FOLIC ACID [Concomitant]
     Active Substance: FOLIC ACID
     Dosage: 1 MILLIGRAM, QD
     Dates: start: 20241016, end: 20241127
  33. Acetaphen [Concomitant]
     Indication: Adverse event
     Dates: start: 20241130, end: 20241130
  34. METOCLOPRAMIDE HYDROCHLORIDE [Concomitant]
     Active Substance: METOCLOPRAMIDE HYDROCHLORIDE
     Indication: Adverse event
     Dates: start: 20241209, end: 20241209
  35. Plasma Solution A [Concomitant]
     Indication: Adverse event
     Dates: start: 20241209, end: 20241209
  36. TYLENOL 8HR [Concomitant]
     Active Substance: ACETAMINOPHEN
     Indication: Prophylaxis
     Dates: start: 20241211, end: 20241211
  37. TYLENOL 8HR [Concomitant]
     Active Substance: ACETAMINOPHEN
     Dates: start: 20241226, end: 20241226
  38. HUMIRA [Concomitant]
     Active Substance: ADALIMUMAB
     Dates: start: 20141112, end: 20141112
  39. HUMIRA [Concomitant]
     Active Substance: ADALIMUMAB
     Dates: start: 20141209, end: 20141209
  40. HUMIRA [Concomitant]
     Active Substance: ADALIMUMAB
     Dates: start: 20141223, end: 20170106
  41. INFLIXIMAB [Concomitant]
     Active Substance: INFLIXIMAB
     Dates: start: 20170318, end: 20220914
  42. INFLIXIMAB [Concomitant]
     Active Substance: INFLIXIMAB
     Dates: start: 20230111, end: 20230125
  43. INFLIXIMAB [Concomitant]
     Active Substance: INFLIXIMAB
     Dates: start: 20230123, end: 20230123
  44. STELARA [Concomitant]
     Active Substance: USTEKINUMAB
     Dates: start: 20230222, end: 20230222
  45. STELARA [Concomitant]
     Active Substance: USTEKINUMAB
     Dates: start: 20230419, end: 20230419
  46. STELARA [Concomitant]
     Active Substance: USTEKINUMAB
     Dates: start: 20230802, end: 20240313
  47. RINVOQ [Concomitant]
     Active Substance: UPADACITINIB
     Dosage: 30 MILLIGRAM, QD
     Dates: start: 20240508, end: 20240604
  48. RINVOQ [Concomitant]
     Active Substance: UPADACITINIB
     Dosage: 15 MILLIGRAM, QD
     Dates: start: 20240508, end: 20240604
  49. Solondo [Concomitant]
     Indication: Abdominal pain
     Dosage: 30 MILLIGRAM, QD
     Dates: start: 20240619, end: 20240623
  50. METHOTREXATE [Concomitant]
     Active Substance: METHOTREXATE
     Dosage: 5 MILLIGRAM, 1/WEEK
     Dates: start: 20241017, end: 20241121
  51. INFLIXIMAB [Concomitant]
     Active Substance: INFLIXIMAB
     Indication: Drug ineffective
     Dates: start: 20241211, end: 20241211
  52. AZATHIOPRINE [Concomitant]
     Active Substance: AZATHIOPRINE
     Indication: Drug ineffective
     Dosage: 50 MILLIGRAM, QD
     Dates: start: 20241211
  53. Boryung flu VIII tetra [Concomitant]
     Indication: Antiviral prophylaxis
     Dates: start: 20241016, end: 20241016
  54. EBASTINE [Concomitant]
     Active Substance: EBASTINE
     Indication: Prophylaxis
     Dates: start: 20241211, end: 20241211
  55. EBASTINE [Concomitant]
     Active Substance: EBASTINE
     Dates: start: 20241226, end: 20241226

REACTIONS (1)
  - Crohn^s disease [Recovered/Resolved]

NARRATIVE: CASE EVENT DATE: 20250107
